FAERS Safety Report 10108548 (Version 3)
Quarter: 2014Q3

REPORT INFORMATION
  Report Type: Spontaneous
  Country: US (occurrence: US)
  Receive Date: 20140425
  Receipt Date: 20140901
  Transmission Date: 20150326
  Serious: No
  Sender: FDA-Public Use
  Company Number: US-009507513-1404USA012400

PATIENT
  Age: 43 Year
  Sex: Female
  Weight: 49.89 kg

DRUGS (1)
  1. IMPLANON [Suspect]
     Active Substance: ETONOGESTREL
     Indication: CONTRACEPTION
     Dosage: 68 MG, 3 YEAR IMPLANT, LEFT ARM
     Route: 059
     Dates: start: 20130117, end: 2014

REACTIONS (3)
  - Medical device complication [Recovered/Resolved]
  - Dysphoria [Unknown]
  - Implant site scar [Not Recovered/Not Resolved]

NARRATIVE: CASE EVENT DATE: 201308
